FAERS Safety Report 8166437-2 (Version None)
Quarter: 2012Q1

REPORT INFORMATION
  Report Type: 
  Country: None (occurrence: None)
  Receive Date: 20120227
  Receipt Date: 20110825
  Transmission Date: 20120608
  Serious: No
  Sender: FDA-Public Use
  Company Number: US-MYLANLABS-2011S1016237

PATIENT
  Age: 21 Year
  Sex: Female

DRUGS (6)
  1. AMNESTEEM [Suspect]
     Route: 048
     Dates: end: 20110801
  2. CLARAVIS [Suspect]
     Indication: ACNE CYSTIC
     Route: 048
     Dates: start: 20110501
  3. AMNESTEEM [Suspect]
     Route: 048
     Dates: start: 20110207, end: 20110501
  4. CLARAVIS [Suspect]
     Route: 048
     Dates: start: 20110501
  5. AMNESTEEM [Suspect]
     Indication: ACNE CYSTIC
     Route: 048
     Dates: start: 20110314, end: 20110501
  6. AMNESTEEM [Suspect]
     Route: 048
     Dates: end: 20110801

REACTIONS (2)
  - HAEMATOCHEZIA [None]
  - DEFAECATION URGENCY [None]
